FAERS Safety Report 13413445 (Version 2)
Quarter: 2017Q4

REPORT INFORMATION
  Report Type: Spontaneous
  Country: US (occurrence: US)
  Receive Date: 20170406
  Receipt Date: 20171123
  Transmission Date: 20180320
  Serious: No
  Sender: FDA-Public Use
  Company Number: US-JNJFOC-20170313534

PATIENT
  Sex: Male

DRUGS (17)
  1. RISPERIDONE. [Suspect]
     Active Substance: RISPERIDONE
     Indication: OPPOSITIONAL DEFIANT DISORDER
     Dosage: 2 MG, 3 MG
     Route: 048
     Dates: start: 20080529, end: 20131114
  2. RISPERIDONE. [Suspect]
     Active Substance: RISPERIDONE
     Indication: AUTISM SPECTRUM DISORDER
     Dosage: 2 MG, 3 MG
     Route: 048
     Dates: start: 20080529, end: 20131114
  3. RISPERDAL [Suspect]
     Active Substance: RISPERIDONE
     Indication: OPPOSITIONAL DEFIANT DISORDER
     Dosage: 0.25 MG, 1 MG, 0.5 MG, 3 MG
     Route: 048
     Dates: start: 20120103, end: 20131114
  4. RISPERDAL [Suspect]
     Active Substance: RISPERIDONE
     Indication: ATTENTION DEFICIT/HYPERACTIVITY DISORDER
     Dosage: DOSE: 0.25 MG, 1 MG, 0.5 MG, 3 MG
     Route: 048
     Dates: start: 20060817
  5. RISPERDAL [Suspect]
     Active Substance: RISPERIDONE
     Indication: AUTISM SPECTRUM DISORDER
     Dosage: DOSE: 0.25 MG, 1 MG, 0.5 MG, 3 MG
     Route: 048
     Dates: start: 20060817
  6. RISPERDAL [Suspect]
     Active Substance: RISPERIDONE
     Indication: BIPOLAR DISORDER
     Dosage: DOSE: 0.25 MG, 1 MG, 0.5 MG, 3 MG
     Route: 048
     Dates: start: 20060817
  7. RISPERDAL [Suspect]
     Active Substance: RISPERIDONE
     Indication: BIPOLAR DISORDER
     Dosage: 0.25 MG, 1 MG, 0.5 MG, 3 MG
     Route: 048
     Dates: start: 20120103, end: 20131114
  8. RISPERIDONE. [Suspect]
     Active Substance: RISPERIDONE
     Indication: ATTENTION DEFICIT/HYPERACTIVITY DISORDER
     Dosage: 2 MG, 3 MG
     Route: 048
     Dates: start: 20080529, end: 20131114
  9. RISPERIDONE. [Suspect]
     Active Substance: RISPERIDONE
     Indication: PRODUCT USED FOR UNKNOWN INDICATION
     Route: 048
  10. RISPERDAL [Suspect]
     Active Substance: RISPERIDONE
     Indication: OPPOSITIONAL DEFIANT DISORDER
     Dosage: 0.25 MG, 1 MG, 0.5 MG, 3 MG
     Route: 048
     Dates: start: 20070802, end: 20080702
  11. RISPERDAL [Suspect]
     Active Substance: RISPERIDONE
     Indication: OPPOSITIONAL DEFIANT DISORDER
     Dosage: DOSE: 0.25 MG, 1 MG, 0.5 MG, 3 MG
     Route: 048
     Dates: start: 20060817
  12. RISPERDAL [Suspect]
     Active Substance: RISPERIDONE
     Indication: ATTENTION DEFICIT/HYPERACTIVITY DISORDER
     Dosage: 0.25 MG, 1 MG, 0.5 MG, 3 MG
     Route: 048
     Dates: start: 20070802, end: 20080702
  13. RISPERDAL [Suspect]
     Active Substance: RISPERIDONE
     Indication: AUTISM SPECTRUM DISORDER
     Dosage: 0.25 MG, 1 MG, 0.5 MG, 3 MG
     Route: 048
     Dates: start: 20070802, end: 20080702
  14. RISPERDAL [Suspect]
     Active Substance: RISPERIDONE
     Indication: BIPOLAR DISORDER
     Dosage: 0.25 MG, 1 MG, 0.5 MG, 3 MG
     Route: 048
     Dates: start: 20070802, end: 20080702
  15. RISPERDAL [Suspect]
     Active Substance: RISPERIDONE
     Indication: ATTENTION DEFICIT/HYPERACTIVITY DISORDER
     Dosage: 0.25 MG, 1 MG, 0.5 MG, 3 MG
     Route: 048
     Dates: start: 20120103, end: 20131114
  16. RISPERDAL [Suspect]
     Active Substance: RISPERIDONE
     Indication: AUTISM SPECTRUM DISORDER
     Dosage: 0.25 MG, 1 MG, 0.5 MG, 3 MG
     Route: 048
     Dates: start: 20120103, end: 20131114
  17. RISPERIDONE. [Suspect]
     Active Substance: RISPERIDONE
     Indication: BIPOLAR DISORDER
     Dosage: 2 MG, 3 MG
     Route: 048
     Dates: start: 20080529, end: 20131114

REACTIONS (2)
  - Gynaecomastia [Unknown]
  - Emotional disorder [Unknown]
